FAERS Safety Report 8600418-7 (Version None)
Quarter: 2012Q3

REPORT INFORMATION
  Report Type: 
  Country: None (occurrence: None)
  Receive Date: 20120802
  Receipt Date: 20120618
  Transmission Date: 20120928
  Serious: Yes (Hospitalization)
  Sender: FDA-Public Use
  Company Number: 12-536

PATIENT
  Age: 40 Year
  Sex: Male

DRUGS (4)
  1. ACETYLSALICYLIC ACID + PARACETAMOL+CAFFEINE (ALKA SELTZER XS) [Suspect]
     Indication: ABDOMINAL DISCOMFORT
     Dosage: 2 DF, ONCE, ORAL
     Route: 048
     Dates: start: 20120609, end: 20120609
  2. EFFERVESCENT HEALT SALTS [Concomitant]
  3. OMEPRAZOLE [Concomitant]
  4. IBUPROFEN [Suspect]
     Indication: GASTRIC DISORDER
     Dosage: 200 MG (2X1 DAY), ORAL
     Route: 048
     Dates: start: 20120609, end: 20120601

REACTIONS (9)
  - MOBILITY DECREASED [None]
  - ABDOMINAL DISCOMFORT [None]
  - DIZZINESS [None]
  - MALAISE [None]
  - PARAESTHESIA [None]
  - VIITH NERVE PARALYSIS [None]
  - ASTHENIA [None]
  - QUADRIPLEGIA [None]
  - HYPOAESTHESIA [None]
